FAERS Safety Report 18123442 (Version 3)
Quarter: 2021Q1

REPORT INFORMATION
  Report Type: Report from Study
  Country: JP (occurrence: JP)
  Receive Date: 20200807
  Receipt Date: 20210210
  Transmission Date: 20210419
  Serious: Yes (Hospitalization, Disabling, Other)
  Sender: FDA-Public Use
  Company Number: JP-GLAXOSMITHKLINE-JP2020JPN098336

PATIENT
  Age: 7 Decade
  Sex: Male
  Weight: 60.7 kg

DRUGS (61)
  1. MEPOLIZUMAB [Suspect]
     Active Substance: MEPOLIZUMAB
     Dosage: 300 MG
     Route: 058
     Dates: start: 20190417, end: 20190417
  2. MEPOLIZUMAB [Suspect]
     Active Substance: MEPOLIZUMAB
     Dosage: 300 MG
     Route: 058
     Dates: start: 20191213, end: 20191213
  3. NEORAL [Concomitant]
     Active Substance: CYCLOSPORINE
     Dosage: 125 MG, 1D
     Dates: start: 20180910
  4. PREDNISOLONE. [Concomitant]
     Active Substance: PREDNISOLONE
     Dosage: 15 MG, 1D
     Dates: start: 20200408, end: 20200423
  5. LIORESAL [Concomitant]
     Active Substance: BACLOFEN
     Dosage: UNK
  6. TRAZODONE HYDROCHLORIDE TABLETS [Concomitant]
     Active Substance: TRAZODONE HYDROCHLORIDE
     Dosage: UNK
  7. OLOPATADINE HYDROCHLORIDE TABLETS [Concomitant]
     Active Substance: OLOPATADINE HYDROCHLORIDE
     Dosage: UNK
  8. MEPOLIZUMAB [Suspect]
     Active Substance: MEPOLIZUMAB
     Dosage: 300 MG
     Route: 058
     Dates: start: 20200110, end: 20200110
  9. NEORAL [Concomitant]
     Active Substance: CYCLOSPORINE
     Dosage: 100 MG, 1D
     Dates: end: 202007
  10. PREDNISOLONE. [Concomitant]
     Active Substance: PREDNISOLONE
     Dosage: 12 MG, 1D
     Dates: end: 20180910
  11. PREDNISOLONE. [Concomitant]
     Active Substance: PREDNISOLONE
     Dosage: 8 MG, 1D
     Dates: start: 20190215, end: 20190314
  12. TSUMURA DAIKENCHUTO [Concomitant]
     Active Substance: HERBALS
     Dosage: UNK
  13. MEPOLIZUMAB [Suspect]
     Active Substance: MEPOLIZUMAB
     Dosage: 300 MG
     Route: 058
     Dates: start: 20190719, end: 20190719
  14. MEPOLIZUMAB [Suspect]
     Active Substance: MEPOLIZUMAB
     Dosage: 300 MG
     Route: 058
     Dates: start: 20191018, end: 20191018
  15. CELECOX TABLETS [Concomitant]
     Indication: EOSINOPHILIC GRANULOMATOSIS WITH POLYANGIITIS
     Dosage: UNK
  16. MEPTIN AIR INHALATION [Concomitant]
     Indication: EOSINOPHILIC GRANULOMATOSIS WITH POLYANGIITIS
     Dosage: 10 ?G/DAY WHEN HAVING AN ATTACK
     Route: 055
     Dates: start: 20191018
  17. AZOSEMIDE TABLET [Concomitant]
     Dosage: UNK
  18. MEPOLIZUMAB [Suspect]
     Active Substance: MEPOLIZUMAB
     Indication: EOSINOPHILIC GRANULOMATOSIS WITH POLYANGIITIS
     Dosage: 300 MG
     Route: 058
     Dates: start: 20180910, end: 20180910
  19. MEPOLIZUMAB [Suspect]
     Active Substance: MEPOLIZUMAB
     Dosage: 300 MG
     Route: 058
     Dates: start: 20181214, end: 20181214
  20. MEPOLIZUMAB [Suspect]
     Active Substance: MEPOLIZUMAB
     Dosage: 300 MG
     Route: 058
     Dates: start: 20190617, end: 20190617
  21. MEPOLIZUMAB [Suspect]
     Active Substance: MEPOLIZUMAB
     Dosage: 300 MG
     Route: 058
     Dates: start: 20200306, end: 20200306
  22. NEORAL [Concomitant]
     Active Substance: CYCLOSPORINE
     Indication: EOSINOPHILIC GRANULOMATOSIS WITH POLYANGIITIS
     Dosage: 100 MG
     Dates: start: 20090423
  23. PREDNISOLONE. [Concomitant]
     Active Substance: PREDNISOLONE
     Dosage: 7 MG, 1D
     Dates: start: 20190315, end: 20190416
  24. THEOPHYLLINE SUSTAINED?RELEASE TABLETS [Concomitant]
     Indication: EOSINOPHILIC GRANULOMATOSIS WITH POLYANGIITIS
     Dosage: 400 MG, 1D
     Dates: start: 20180910
  25. LANSOPRAZOLE?OD TABLETS [Concomitant]
     Dosage: UNK
  26. MEPOLIZUMAB [Suspect]
     Active Substance: MEPOLIZUMAB
     Dosage: 300 MG
     Route: 058
     Dates: start: 20190118, end: 20190118
  27. MEPOLIZUMAB [Suspect]
     Active Substance: MEPOLIZUMAB
     Dosage: 300 MG
     Route: 058
     Dates: start: 20190215, end: 20190215
  28. MEPOLIZUMAB [Suspect]
     Active Substance: MEPOLIZUMAB
     Dosage: 300 MG
     Route: 058
     Dates: start: 20190520, end: 20190520
  29. MEPOLIZUMAB [Suspect]
     Active Substance: MEPOLIZUMAB
     Dosage: 300 MG
     Route: 058
     Dates: start: 20200403, end: 20200403
  30. PREDNISOLONE. [Concomitant]
     Active Substance: PREDNISOLONE
     Dosage: 10 MG, 1D
     Dates: end: 20190214
  31. PREDNISOLONE. [Concomitant]
     Active Substance: PREDNISOLONE
     Dosage: 6 MG, 1D
     Dates: start: 20190417, end: 20190519
  32. PREDNISOLONE. [Concomitant]
     Active Substance: PREDNISOLONE
     Dosage: 5 MG, 1D
     Dates: start: 20190520, end: 20200402
  33. PREDNISOLONE. [Concomitant]
     Active Substance: PREDNISOLONE
     Dosage: 13 MG, 1D
     Dates: start: 20200514
  34. LYRICA OD TABLETS [Concomitant]
     Indication: EOSINOPHILIC GRANULOMATOSIS WITH POLYANGIITIS
     Dosage: UNK
  35. SODIUM PICOSULFATE ORAL SOLUTION [Concomitant]
  36. BETANIS TABLETS [Concomitant]
     Dosage: UNK
  37. CILOSTAZOL TABLETS [Concomitant]
     Active Substance: CILOSTAZOL
     Indication: CEREBRAL INFARCTION
     Dosage: UNK
  38. MEPOLIZUMAB [Suspect]
     Active Substance: MEPOLIZUMAB
     Dosage: 300 MG
     Route: 058
     Dates: start: 20190819, end: 20190819
  39. MEPOLIZUMAB [Suspect]
     Active Substance: MEPOLIZUMAB
     Dosage: 300 MG
     Route: 058
     Dates: start: 20190920, end: 20190920
  40. MEPOLIZUMAB [Suspect]
     Active Substance: MEPOLIZUMAB
     Dosage: 300 MG
     Route: 058
     Dates: start: 20191115, end: 20191115
  41. PREDNISOLONE. [Concomitant]
     Active Substance: PREDNISOLONE
     Dosage: 10 MG, 1D
     Dates: start: 20200403, end: 20200407
  42. PREDNISOLONE. [Concomitant]
     Active Substance: PREDNISOLONE
     Dosage: 14 MG, 1D
     Dates: start: 20200424
  43. FEXOFENADINE HYDROCHLORIDE OD TABLET [Concomitant]
     Dosage: UNK
  44. BROTIZOLAM TABLETS [Concomitant]
     Active Substance: BROTIZOLAM
     Dosage: UNK
  45. NIZORAL [Concomitant]
     Active Substance: KETOCONAZOLE
     Dosage: UNK
  46. HEPARINOID OIL?BASED CREAM 0.3% [Concomitant]
     Dosage: UNK
  47. MEPOLIZUMAB [Suspect]
     Active Substance: MEPOLIZUMAB
     Dosage: 300 MG
     Route: 058
     Dates: start: 20181012, end: 20181012
  48. MEPOLIZUMAB [Suspect]
     Active Substance: MEPOLIZUMAB
     Dosage: 300 MG
     Route: 058
     Dates: start: 20190315, end: 20190315
  49. PREDNISOLONE. [Concomitant]
     Active Substance: PREDNISOLONE
     Indication: EOSINOPHILIC GRANULOMATOSIS WITH POLYANGIITIS
     Dosage: 5 MG, AT NORMAL TIME
     Dates: start: 20080608
  50. PREDNISOLONE. [Concomitant]
     Active Substance: PREDNISOLONE
     Dosage: 10 MG
     Dates: end: 202007
  51. FLUTIDE DISKUS [Concomitant]
     Active Substance: FLUTICASONE PROPIONATE
     Indication: EOSINOPHILIC GRANULOMATOSIS WITH POLYANGIITIS
     Dosage: 400 ?G, 1D
     Route: 055
     Dates: end: 20200512
  52. CALFINA TABLET [Concomitant]
     Dosage: UNK
  53. PULMICORT TURBUHALER [Concomitant]
     Active Substance: BUDESONIDE
     Indication: EOSINOPHILIC GRANULOMATOSIS WITH POLYANGIITIS
     Dosage: 400 ?G, 1D
     Route: 055
     Dates: start: 20200513
  54. MEPOLIZUMAB [Suspect]
     Active Substance: MEPOLIZUMAB
     Dosage: 300 MG
     Route: 058
     Dates: start: 20181109, end: 20181109
  55. MEPOLIZUMAB [Suspect]
     Active Substance: MEPOLIZUMAB
     Dosage: 300 MG
     Route: 058
     Dates: start: 20200207, end: 20200207
  56. METHYCOBAL TABLET [Concomitant]
     Dosage: UNK
  57. ASPARA POTASSIUM TABLETS [Concomitant]
     Dosage: UNK
  58. SENNOSIDES TABLET [Concomitant]
     Active Substance: SENNOSIDES
     Dosage: UNK
  59. ALENDRONATE SODIUM TABLET [Concomitant]
     Active Substance: ALENDRONATE SODIUM
     Dosage: UNK
  60. TOKAKUJOKITO [Concomitant]
     Dosage: UNK
  61. BAKTAR COMBINATION TABLETS [Concomitant]
     Active Substance: SULFAMETHOXAZOLE\TRIMETHOPRIM
     Dosage: UNK

REACTIONS (10)
  - Pyrexia [Unknown]
  - Cerebral infarction [Recovered/Resolved with Sequelae]
  - Blood pressure decreased [Unknown]
  - Hemiparesis [Unknown]
  - Disseminated intravascular coagulation [Recovered/Resolved]
  - Urinary tract infection [Recovered/Resolved]
  - Pyelonephritis [Recovered/Resolved]
  - Urosepsis [Recovered/Resolved]
  - Ischaemic stroke [Recovered/Resolved with Sequelae]
  - Somnolence [Unknown]

NARRATIVE: CASE EVENT DATE: 2020
